FAERS Safety Report 4832546-6 (Version None)
Quarter: 2005Q4

REPORT INFORMATION
  Report Type: 
  Country: None (occurrence: None)
  Receive Date: 20051121
  Receipt Date: 20040929
  Transmission Date: 20060501
  Serious: Yes (Hospitalization, Other)
  Sender: FDA-Public Use
  Company Number: FI-AMGEN-UK093329

PATIENT
  Sex: Female
  Weight: 83 kg

DRUGS (17)
  1. ARANESP [Suspect]
     Indication: RENAL FAILURE CHRONIC
     Route: 042
     Dates: start: 20040720, end: 20051006
  2. FURESIS [Concomitant]
     Route: 048
     Dates: start: 20040426, end: 20040928
  3. INSULIN [Concomitant]
     Route: 058
     Dates: start: 20040525
  4. TEMAZEPAM [Concomitant]
  5. TRAMADOL HCL [Concomitant]
     Route: 048
     Dates: start: 20030401, end: 20040928
  6. ENOXAPARIN SODIUM [Concomitant]
     Route: 042
     Dates: start: 20000416
  7. PARACETAMOL WITH CODEINE [Concomitant]
     Dates: start: 20031107, end: 20040928
  8. QUININE [Concomitant]
     Route: 048
     Dates: start: 20040910, end: 20040928
  9. MEPROBAMATE [Concomitant]
     Route: 048
     Dates: start: 20040910, end: 20040928
  10. CRESTOR [Concomitant]
     Route: 048
     Dates: start: 20040224, end: 20040928
  11. CALCIUM CARBONATE [Concomitant]
     Route: 065
     Dates: start: 20040101
  12. NEXIUM [Concomitant]
     Route: 065
     Dates: start: 20040629
  13. LAXOBERON [Concomitant]
     Dates: start: 20000101
  14. MULTI-VITAMINS [Concomitant]
     Dates: start: 20000101
  15. ETALPHA [Concomitant]
     Dates: start: 20031101
  16. VENOFER [Concomitant]
     Dates: start: 20040104, end: 20050118
  17. HYDROXOCOBALAMIN [Concomitant]

REACTIONS (15)
  - ABDOMINAL PAIN [None]
  - APLASIA PURE RED CELL [None]
  - ARTHRALGIA [None]
  - BILE DUCT STONE [None]
  - C-REACTIVE PROTEIN INCREASED [None]
  - DISLOCATION OF JOINT PROSTHESIS [None]
  - DIVERTICULITIS [None]
  - ESCHERICHIA URINARY TRACT INFECTION [None]
  - GASTRITIS ATROPHIC [None]
  - GRAFT THROMBOSIS [None]
  - HYPERKALAEMIA [None]
  - HYPERPHOSPHATAEMIA [None]
  - HYPERTENSION [None]
  - URINARY TRACT INFECTION BACTERIAL [None]
  - URINARY TRACT INFECTION ENTEROCOCCAL [None]
